FAERS Safety Report 7124846-4 (Version None)
Quarter: 2010Q4

REPORT INFORMATION
  Report Type: 
  Country: None (occurrence: None)
  Receive Date: 20101123
  Receipt Date: 20101123
  Transmission Date: 20110411
  Serious: Yes (Hospitalization)
  Sender: FDA-Public Use
  Company Number: None

PATIENT
  Sex: Female
  Weight: 50.8029 kg

DRUGS (4)
  1. CIPRO [Suspect]
     Indication: URINARY TRACT INFECTION
     Dosage: 500MG ONCE PO
     Route: 048
     Dates: start: 20100822, end: 20100822
  2. ROCEPHIN [Suspect]
     Indication: URINARY TRACT INFECTION
     Dosage: 500MG ONCE IV DRIP
     Route: 041
     Dates: start: 20100822, end: 20100823
  3. SYNTHROID [Concomitant]
  4. ASPIRIN [Concomitant]

REACTIONS (3)
  - CLOSTRIDIAL INFECTION [None]
  - DIARRHOEA [None]
  - FAECAL INCONTINENCE [None]
